FAERS Safety Report 9837564 (Version 1)
Quarter: 2014Q1

REPORT INFORMATION
  Report Type: Spontaneous
  Country: US (occurrence: None)
  Receive Date: 20140117
  Receipt Date: 20140117
  Transmission Date: 20141002
  Serious: Yes (Disabling, Other)
  Sender: FDA-Public Use
  Company Number: None

PATIENT
  Age: 69 Year
  Sex: Male
  Weight: 95.26 kg

DRUGS (3)
  1. RESTASIS [Suspect]
     Indication: DIPLOPIA
     Route: 047
  2. B12 SHOTS [Concomitant]
  3. BABY ASPIRIN [Concomitant]

REACTIONS (7)
  - Eye pain [None]
  - Rhinorrhoea [None]
  - Throat irritation [None]
  - Toothache [None]
  - Hypoaesthesia [None]
  - Dysphagia [None]
  - Dysphonia [None]
